FAERS Safety Report 23434026 (Version 2)
Quarter: 2024Q1

REPORT INFORMATION
  Report Type: Spontaneous
  Country: US (occurrence: US)
  Receive Date: 20240123
  Receipt Date: 20240212
  Transmission Date: 20240410
  Serious: No
  Sender: FDA-Public Use
  Company Number: US-BRISTOL-MYERS SQUIBB COMPANY-2024-011005

PATIENT
  Age: 83 Year
  Sex: Female
  Weight: 57.15 kg

DRUGS (1)
  1. REVLIMID [Suspect]
     Active Substance: LENALIDOMIDE
     Indication: Myelodysplastic syndrome
     Route: 048
     Dates: start: 20231101

REACTIONS (5)
  - COVID-19 [Recovering/Resolving]
  - Off label use [Unknown]
  - Fatigue [Unknown]
  - Balance disorder [Unknown]
  - Asthenia [Unknown]
